FAERS Safety Report 8197445-3 (Version None)
Quarter: 2012Q1

REPORT INFORMATION
  Report Type: 
  Country: None (occurrence: None)
  Receive Date: 20120309
  Receipt Date: 20120227
  Transmission Date: 20120608
  Serious: Yes (Hospitalization)
  Sender: FDA-Public Use
  Company Number: GB-ROCHE-1002006

PATIENT
  Sex: Female

DRUGS (3)
  1. LUCENTIS [Suspect]
     Indication: PRODUCT USED FOR UNKNOWN INDICATION
     Route: 050
  2. LUCENTIS [Suspect]
     Route: 050
  3. LUCENTIS [Suspect]
     Route: 050

REACTIONS (2)
  - FALL [None]
  - HIP FRACTURE [None]
